FAERS Safety Report 8058035-6 (Version None)
Quarter: 2012Q1

REPORT INFORMATION
  Report Type: 
  Country: None (occurrence: None)
  Receive Date: 20120113
  Receipt Date: 20111227
  Transmission Date: 20120608
  Serious: Yes (Other)
  Sender: FDA-Public Use
  Company Number: PRED20110168

PATIENT
  Age: 50 Month
  Sex: Male

DRUGS (1)
  1. PREDNISONE TAB [Suspect]
     Indication: DEMYELINATING POLYNEUROPATHY
     Dosage: 60 MG, D, ORAL
     Route: 048

REACTIONS (10)
  - ANAESTHESIA [None]
  - OPHTHALMOPLEGIA [None]
  - ATAXIA [None]
  - NEUROLOGICAL DECOMPENSATION [None]
  - NEUROPATHY PERIPHERAL [None]
  - GAIT DISTURBANCE [None]
  - DIPLOPIA [None]
  - CONDITION AGGRAVATED [None]
  - DYSPHAGIA [None]
  - DYSARTHRIA [None]
